FAERS Safety Report 4932668-5 (Version None)
Quarter: 2006Q1

REPORT INFORMATION
  Report Type: 
  Country: None (occurrence: None)
  Receive Date: 20060301
  Receipt Date: 20060222
  Transmission Date: 20060701
  Serious: Yes (Other)
  Sender: FDA-Public Use
  Company Number: 200610237BCC

PATIENT
  Sex: Female

DRUGS (2)
  1. ALKA-SELTZER PLUS EFFERVESCENT COLD [Suspect]
     Indication: NASOPHARYNGITIS
     Dosage: ORAL
     Route: 048
  2. ASPIRIN [Suspect]
     Indication: CEREBROVASCULAR ACCIDENT PROPHYLAXIS
     Dosage: ORAL
     Route: 048

REACTIONS (2)
  - BREAST CANCER FEMALE [None]
  - THERAPEUTIC RESPONSE UNEXPECTED [None]
